FAERS Safety Report 13615647 (Version 1)
Quarter: 2017Q2

REPORT INFORMATION
  Report Type: Spontaneous
  Country: US (occurrence: US)
  Receive Date: 20170606
  Receipt Date: 20170606
  Transmission Date: 20170830
  Serious: No
  Sender: FDA-Public Use
  Company Number: US-JNJFOC-20170529253

PATIENT
  Age: 60 Year
  Sex: Female
  Weight: 78.93 kg

DRUGS (2)
  1. NIZORAL A-D [Suspect]
     Active Substance: KETOCONAZOLE
     Route: 061
  2. NIZORAL A-D [Suspect]
     Active Substance: KETOCONAZOLE
     Indication: ACNE
     Dosage: EVERY FEW DAYS
     Route: 061

REACTIONS (2)
  - Off label use [Unknown]
  - Product use in unapproved indication [Unknown]
